FAERS Safety Report 7067926 (Version 3)
Quarter: 2020Q3

REPORT INFORMATION
  Report Type: Report from Study
  Country: BE (occurrence: BE)
  Receive Date: 20090730
  Receipt Date: 20111122
  Transmission Date: 20201105
  Serious: Yes (Hospitalization, Other)
  Sender: FDA-Public Use
  Company Number: BE-JNJFOC-20080905157

PATIENT
  Age: 21 Year
  Sex: Male
  Weight: 72 kg

DRUGS (6)
  1. GOLIMUMAB [Suspect]
     Active Substance: GOLIMUMAB
     Indication: COLITIS ULCERATIVE
     Route: 058
     Dates: start: 20080430
  2. GOLIMUMAB [Suspect]
     Active Substance: GOLIMUMAB
     Route: 042
  3. GOLIMUMAB [Suspect]
     Active Substance: GOLIMUMAB
     Route: 058
     Dates: start: 20080528
  4. COLITOFALK [Concomitant]
     Indication: COLITIS ULCERATIVE
     Route: 048
     Dates: start: 20071211
  5. GOLIMUMAB [Suspect]
     Active Substance: GOLIMUMAB
     Route: 042
     Dates: start: 20080319
  6. ZYRTEC [Concomitant]
     Active Substance: CETIRIZINE HYDROCHLORIDE
     Route: 048
     Dates: start: 20080526

REACTIONS (1)
  - Infected cyst [Recovered/Resolved]

NARRATIVE: CASE EVENT DATE: 20080720
